APPROVED DRUG PRODUCT: ANGIOTENSIN ll ACETATE
Active Ingredient: ANGIOTENSIN II ACETATE
Strength: EQ 2.5MG BASE/ML (EQ 2.5MG BASE/ML)
Dosage Form/Route: SOLUTION;INTRAVENOUS
Application: A216966 | Product #001 | TE Code: AP
Applicant: GLAND PHARMA LTD
Approved: Jun 3, 2025 | RLD: No | RS: No | Type: RX